FAERS Safety Report 7749153-8 (Version None)
Quarter: 2011Q3

REPORT INFORMATION
  Report Type: 
  Country: None (occurrence: None)
  Receive Date: 20110909
  Receipt Date: 20110826
  Transmission Date: 20111222
  Serious: Yes (Other)
  Sender: FDA-Public Use
  Company Number: 2011AP001897

PATIENT
  Age: 68 Year
  Sex: Female

DRUGS (7)
  1. OMEPRAZOLE [Suspect]
     Indication: DYSPEPSIA
     Dosage: 20 MG; PO; BID
     Route: 048
     Dates: start: 20070618, end: 20110719
  2. AMLODIPINE [Concomitant]
  3. PRAVASTATIN [Concomitant]
  4. ACETYLSALICYLIC ACID (ACETYSALICYLIC ACID) [Concomitant]
  5. LISINOPRIL [Concomitant]
  6. BISOPROLOL FUMARATE [Concomitant]
  7. QUININE SULPHATE (QUININE SULFATE) [Concomitant]

REACTIONS (1)
  - HYPOMAGNESAEMIA [None]
